FAERS Safety Report 7971527-0 (Version None)
Quarter: 2011Q4

REPORT INFORMATION
  Report Type: 
  Country: None (occurrence: None)
  Receive Date: 20111212
  Receipt Date: 20111108
  Transmission Date: 20120403
  Serious: Yes (Death)
  Sender: FDA-Public Use
  Company Number: SE-ELI_LILLY_AND_COMPANY-SE201110002763

PATIENT

DRUGS (2)
  1. ZYPREXA [Suspect]
     Dosage: 2.5 MG, QD
     Route: 064
  2. ZYPREXA [Suspect]
     Dosage: 30 MG, QD
     Route: 064

REACTIONS (2)
  - DEATH NEONATAL [None]
  - FOETAL EXPOSURE DURING PREGNANCY [None]
